FAERS Safety Report 8481740-4 (Version None)
Quarter: 2012Q3

REPORT INFORMATION
  Report Type: 
  Country: None (occurrence: None)
  Receive Date: 20120702
  Receipt Date: 20120628
  Transmission Date: 20120928
  Serious: Yes (Death, Life-Threatening, Hospitalization)
  Sender: FDA-Public Use
  Company Number: DE-ASTRAZENECA-2011SE00410

PATIENT
  Age: 72 Year
  Sex: Female
  Weight: 100 kg

DRUGS (8)
  1. ARIMIDEX [Suspect]
     Indication: BREAST CANCER
     Route: 048
     Dates: start: 20100904
  2. LEVOTHYROXINE SODIUM [Concomitant]
     Indication: THYROID DISORDER
     Route: 050
  3. TORSEMIDE [Concomitant]
     Indication: CORONARY ARTERY DISEASE
     Route: 050
  4. BISOPROLOL FUMARATE [Concomitant]
     Indication: BLOOD PRESSURE
     Route: 050
  5. SIMVASTATIN [Concomitant]
     Indication: HYPERCHOLESTEROLAEMIA
     Route: 050
  6. RAMIPRIL [Concomitant]
     Indication: BLOOD PRESSURE
     Route: 050
  7. ASPIRIN [Concomitant]
     Route: 050
  8. PANTOPRAZOLE [Concomitant]
     Indication: GASTRITIS PROPHYLAXIS
     Route: 050

REACTIONS (2)
  - IATROGENIC INJURY [None]
  - MALIGNANT ASCITES [None]
